FAERS Safety Report 23604098 (Version 1)
Quarter: 2024Q1

REPORT INFORMATION
  Report Type: Report from Study
  Country: BE (occurrence: BE)
  Receive Date: 20240307
  Receipt Date: 20240307
  Transmission Date: 20240410
  Serious: Yes (Hospitalization, Other)
  Sender: FDA-Public Use
  Company Number: BE-SUN PHARMACEUTICAL INDUSTRIES LTD-2024R1-432525

PATIENT
  Age: 80 Year
  Sex: Female
  Weight: 73.8 kg

DRUGS (14)
  1. OXALIPLATIN [Suspect]
     Active Substance: OXALIPLATIN
     Indication: Oesophageal adenocarcinoma
     Dosage: 100 MILLIGRAM/SQ. METER(EVERY 3 WEEKS)
     Route: 042
     Dates: start: 20230921, end: 20240125
  2. OXALIPLATIN [Suspect]
     Active Substance: OXALIPLATIN
     Dosage: 130 MILLIGRAM/SQ. METER (EVERY 3 WEEKS)
     Route: 042
     Dates: start: 20230823
  3. LOPERAMIDE [Suspect]
     Active Substance: LOPERAMIDE
     Indication: Product used for unknown indication
     Dosage: 12 MILLIGRAM (12 MILLIGRAM PER DECILITRE. AT AN UNSPECIFIED FREQUENCY)
     Route: 048
     Dates: end: 20240127
  4. LOPERAMIDE [Suspect]
     Active Substance: LOPERAMIDE
     Dosage: 4 MILLIGRAM, TWO TIMES A DAY
     Route: 048
     Dates: start: 20230825
  5. ZANIDATAMAB [Suspect]
     Active Substance: ZANIDATAMAB
     Indication: Oesophageal adenocarcinoma
     Dosage: 1800 MILLIGRAM, EVERY WEEK(UNK (1800 MILLIGRAM EVERY 3 WEEKS))
     Route: 042
     Dates: start: 20231012, end: 20240125
  6. ZANIDATAMAB [Suspect]
     Active Substance: ZANIDATAMAB
     Dosage: 2400 MILLIGRAM, EVERY WEEK( (2400 MILLIGRAM, Q3W))
     Route: 042
     Dates: start: 20230823
  7. CAPECITABINE [Suspect]
     Active Substance: CAPECITABINE
     Indication: Oesophageal adenocarcinoma
     Dosage: 750 MILLIGRAM/SQ. METER, TWO TIMES A DAY(750 MILLIGRAM/SQ. METER, BID)
     Route: 048
     Dates: start: 20230921
  8. CAPECITABINE [Suspect]
     Active Substance: CAPECITABINE
     Dosage: 500 MILLIGRAM/SQ. METER, TWO TIMES A DAY(500 MILLIGRAM/SQ. METER, BID)
     Route: 048
     Dates: start: 20240125, end: 20240205
  9. CAPECITABINE [Suspect]
     Active Substance: CAPECITABINE
     Dosage: 1000 MILLIGRAM/SQ. METER, TWO TIMES A DAY(1000 MILLIGRAM/SQ. METER, BID)
     Route: 048
     Dates: start: 20230823
  10. TISLELIZUMAB [Suspect]
     Active Substance: TISLELIZUMAB
     Indication: Oesophageal adenocarcinoma
     Dosage: UNK (200 MILLIGRAM, Q3W)
     Route: 042
     Dates: start: 20230823, end: 20230920
  11. DORMONOCT [Concomitant]
     Active Substance: LOPRAZOLAM
     Indication: Insomnia
     Dosage: UNK
     Route: 065
     Dates: start: 20240203
  12. OPIUM TINCTURE [Concomitant]
     Active Substance: MORPHINE
     Indication: Diarrhoea
     Dosage: UNK
     Route: 065
     Dates: start: 20240205
  13. TRAMADOL HYDROCHLORIDE [Concomitant]
     Active Substance: TRAMADOL HYDROCHLORIDE
     Indication: Pain
     Dosage: UNK
     Route: 065
     Dates: start: 20211001
  14. METHOTREXATE SODIUM [Concomitant]
     Active Substance: METHOTREXATE SODIUM
     Indication: Rheumatoid arthritis
     Dosage: UNK
     Route: 065
     Dates: start: 20221222

REACTIONS (1)
  - Diarrhoea [Recovering/Resolving]

NARRATIVE: CASE EVENT DATE: 20240128
